FAERS Safety Report 9557623 (Version 2)
Quarter: 2013Q4

REPORT INFORMATION
  Report Type: Report from Study
  Country: SG (occurrence: SG)
  Receive Date: 20130926
  Receipt Date: 20131010
  Transmission Date: 20140711
  Serious: Yes (Hospitalization)
  Sender: FDA-Public Use
  Company Number: SG-GLAXOSMITHKLINE-B0921895A

PATIENT
  Age: 61 Year
  Sex: Female

DRUGS (5)
  1. LAPATINIB [Suspect]
     Indication: BREAST NEOPLASM
     Dosage: 750MG PER DAY
     Route: 048
     Dates: start: 20130418, end: 20130731
  2. DOXORUBICIN [Suspect]
     Indication: BREAST NEOPLASM
     Dosage: 93MG PER DAY
     Route: 042
     Dates: start: 20130829, end: 20130829
  3. CYCLOPHOSPHAMIDE [Suspect]
     Indication: BREAST NEOPLASM
     Dosage: 930MG PER DAY
     Route: 042
     Dates: start: 20130829, end: 20130829
  4. PACLITAXEL [Suspect]
     Indication: BREAST NEOPLASM
     Dates: start: 20130418, end: 20130711
  5. CARBOPLATIN [Suspect]
     Indication: BREAST NEOPLASM
     Dates: start: 20130418, end: 20130704

REACTIONS (1)
  - Cellulitis [Recovered/Resolved]
